FAERS Safety Report 23190144 (Version 3)
Quarter: 2025Q2

REPORT INFORMATION
  Report Type: Spontaneous
  Country: FR (occurrence: FR)
  Receive Date: 20231116
  Receipt Date: 20250503
  Transmission Date: 20250717
  Serious: Yes (Other)
  Sender: AUROBINDO
  Company Number: FR-SANDOZ-SDZ2023FR047884

PATIENT
  Age: 87 Year
  Sex: Female
  Weight: 44 kg

DRUGS (7)
  1. AMOXICILLIN\CLAVULANIC ACID [Interacting]
     Active Substance: AMOXICILLIN\CLAVULANIC ACID
     Indication: Pneumonia
     Dosage: 1 GRAM, 3 TIMES A DAY
     Route: 042
     Dates: start: 20150326, end: 20150408
  2. FLUINDIONE [Suspect]
     Active Substance: FLUINDIONE
     Indication: Cardiac valve prosthesis user
     Route: 065
  3. FLUINDIONE [Suspect]
     Active Substance: FLUINDIONE
     Route: 065
  4. VITAMIN K [Concomitant]
     Active Substance: PHYTONADIONE
     Indication: Product used for unknown indication
     Route: 042
  5. MIANSERIN [Concomitant]
     Active Substance: MIANSERIN
     Indication: Product used for unknown indication
     Route: 065
  6. HYDROXYZINE [Concomitant]
     Active Substance: HYDROXYZINE HYDROCHLORIDE
     Indication: Product used for unknown indication
     Route: 065
  7. AMIODARONE [Concomitant]
     Active Substance: AMIODARONE
     Indication: Product used for unknown indication
     Dosage: 100 MILLIGRAM, ONCE A DAY
     Route: 065

REACTIONS (2)
  - International normalised ratio increased [Unknown]
  - Drug interaction [Unknown]
